FAERS Safety Report 7772401-5 (Version None)
Quarter: 2011Q3

REPORT INFORMATION
  Report Type: 
  Country: None (occurrence: None)
  Receive Date: 20110922
  Receipt Date: 20110907
  Transmission Date: 20111222
  Serious: Yes (Hospitalization)
  Sender: FDA-Public Use
  Company Number: JP-NOVOPROD-334114

PATIENT

DRUGS (4)
  1. ULGUT                              /00963802/ [Concomitant]
     Dosage: 400 MG, QD
     Route: 048
  2. VICTOZA [Suspect]
     Indication: TYPE 2 DIABETES MELLITUS
     Dosage: 0.3 MG, QD
     Route: 058
     Dates: start: 20110513, end: 20110527
  3. BASEN [Concomitant]
     Dosage: 0.9 MG, QD
     Route: 048
  4. GASTER                             /00661201/ [Concomitant]
     Dosage: 20 MG, QD
     Route: 048

REACTIONS (1)
  - DIVERTICULITIS [None]
